FAERS Safety Report 6820829-X (Version None)
Quarter: 2010Q3

REPORT INFORMATION
  Report Type: 
  Country: None (occurrence: None)
  Receive Date: 20100707
  Receipt Date: 20070613
  Transmission Date: 20110219
  Serious: No
  Sender: FDA-Public Use
  Company Number: US-PFIZER INC-2007047037

PATIENT
  Sex: Female

DRUGS (2)
  1. ZOLOFT [Suspect]
     Dates: start: 20070601
  2. TRAZODONE HYDROCHLORIDE [Suspect]

REACTIONS (5)
  - DRY MOUTH [None]
  - FEELING JITTERY [None]
  - HYPOGLYCAEMIA [None]
  - NERVOUSNESS [None]
  - PALPITATIONS [None]
